FAERS Safety Report 23907623 (Version 8)
Quarter: 2024Q3

REPORT INFORMATION
  Report Type: Report from Study
  Country: US (occurrence: US)
  Receive Date: 20240528
  Receipt Date: 20240812
  Transmission Date: 20241016
  Serious: Yes (Hospitalization, Other)
  Sender: BAXTER
  Company Number: US-BAXTER-2024BAX018576

PATIENT
  Age: 68 Year
  Sex: Male
  Weight: 64.9 kg

DRUGS (39)
  1. DOXORUBICIN [Suspect]
     Active Substance: DOXORUBICIN
     Indication: Diffuse large B-cell lymphoma
     Dosage: 88 MG, EVERY 3 WEEKS, ONGOING
     Route: 042
     Dates: start: 20240408
  2. CYCLOPHOSPHAMIDE [Suspect]
     Active Substance: CYCLOPHOSPHAMIDE
     Indication: Diffuse large B-cell lymphoma
     Dosage: 1320 MG, EVERY 3 WEEKS, ONGOING
     Route: 042
     Dates: start: 20240408
  3. EPCORITAMAB [Suspect]
     Active Substance: EPCORITAMAB
     Indication: Diffuse large B-cell lymphoma
     Dosage: 48 MG C1 (STEP-UP), CYCLES 2-4 (21-DAY CYCLE, WEEKLY DOSE), C5-8 (21-DAY CYCLE, EVERY 3 WEEKS) PER P
     Route: 058
     Dates: start: 20240408, end: 20240430
  4. EPCORITAMAB [Suspect]
     Active Substance: EPCORITAMAB
     Dosage: 48 MG C1 (STEP-UP), CYCLES 2 - 4 (21-DAY CYCLE, WEEKLY DOSE), C5 - 8 (21-DAY CYCLE, EVERY 3 WEEKS) P
     Route: 058
     Dates: start: 20240530
  5. PREDNISONE [Suspect]
     Active Substance: PREDNISONE
     Indication: Diffuse large B-cell lymphoma
     Dosage: 100 MG C1-6, DAY 1-5, EVERY 1 DAYS, ONGOING
     Route: 048
     Dates: start: 20240408
  6. RITUXIMAB [Suspect]
     Active Substance: RITUXIMAB
     Indication: Diffuse large B-cell lymphoma
     Dosage: 700 MG, EVERY 3 WEEKS, ONGOING
     Route: 042
     Dates: start: 20240408
  7. VINCRISTINE [Suspect]
     Active Substance: VINCRISTINE
     Indication: Diffuse large B-cell lymphoma
     Dosage: 2 MG, EVERY 3 WEEKS, ONGOING
     Route: 042
     Dates: start: 20240408
  8. ZOFRAN [Concomitant]
     Active Substance: ONDANSETRON HYDROCHLORIDE
     Indication: Prophylaxis of nausea and vomiting
     Dosage: 4 MG, TOTAL
     Route: 065
     Dates: start: 20240311, end: 20240311
  9. ZOFRAN [Concomitant]
     Active Substance: ONDANSETRON HYDROCHLORIDE
     Indication: Gastritis
     Dosage: 8 MG, AS NECESSARY
     Route: 065
     Dates: start: 20240408
  10. ZOFRAN [Concomitant]
     Active Substance: ONDANSETRON HYDROCHLORIDE
     Indication: Antiemetic supportive care
     Dosage: 24 MG, AS NECESSARY
     Route: 065
     Dates: start: 20240408
  11. ZOFRAN [Concomitant]
     Active Substance: ONDANSETRON HYDROCHLORIDE
     Indication: Nausea
  12. ZOFRAN [Concomitant]
     Active Substance: ONDANSETRON HYDROCHLORIDE
     Indication: Biopsy lymph gland
  13. VITAMINS [Concomitant]
     Active Substance: VITAMINS
     Indication: Nutritional supplementation
     Dosage: 1 DOSAGE FORM, EVERY 1 DAYS, START DATE: 2009
     Route: 065
  14. LIPITOR [Concomitant]
     Active Substance: ATORVASTATIN CALCIUM
     Indication: Hyperlipidaemia
     Dosage: 20 MG, EVERY 1 DAYS, START DATE: 2011
     Route: 065
  15. EMPAGLIFLOZIN [Concomitant]
     Active Substance: EMPAGLIFLOZIN
     Indication: Hyperglycaemia
     Dosage: 25 MG, EVERY 1 DAYS, START DATE: 2021
     Route: 065
  16. FENOFIBRATE [Concomitant]
     Active Substance: FENOFIBRATE
     Indication: Hyperlipidaemia
     Dosage: 160 MG, EVERY 1 DAYS
     Route: 065
     Dates: start: 20230627
  17. NEURONTIN [Concomitant]
     Active Substance: GABAPENTIN
     Indication: Neurodermatitis
     Dosage: 300 MG, EVERY 8 HOURS
     Route: 065
     Dates: start: 20240321
  18. GLUCOTROL [Concomitant]
     Active Substance: GLIPIZIDE
     Indication: Hyperglycaemia
     Dosage: 10 MG, EVERY 1 DAYS
     Route: 065
     Dates: start: 20230822
  19. GLUCOTROL [Concomitant]
     Active Substance: GLIPIZIDE
     Indication: Type 2 diabetes mellitus
  20. JANUVIA [Concomitant]
     Active Substance: SITAGLIPTIN PHOSPHATE
     Indication: Hyperglycaemia
     Dosage: 100 MG, EVERY 1 DAYS, START DATE: 2009
     Route: 065
  21. JANUVIA [Concomitant]
     Active Substance: SITAGLIPTIN PHOSPHATE
     Indication: Type 2 diabetes mellitus
  22. ACYCLOVIR [Concomitant]
     Active Substance: ACYCLOVIR
     Indication: Antiviral prophylaxis
     Dosage: 400 MG, EVERY 1 DAYS
     Route: 065
     Dates: start: 20240415
  23. TYLENOL [Concomitant]
     Active Substance: ACETAMINOPHEN
     Indication: Prophylaxis
     Dosage: 650 MG, AS NECESSARY
     Route: 065
     Dates: start: 20240408
  24. BENADRYL [Concomitant]
     Active Substance: DIPHENHYDRAMINE HYDROCHLORIDE
     Indication: Prophylaxis
     Dosage: 50 MG, AS NECESSARY
     Route: 065
     Dates: start: 20240408
  25. BENADRYL [Concomitant]
     Active Substance: DIPHENHYDRAMINE HYDROCHLORIDE
     Dosage: 25 MG, TOTAL
     Route: 065
     Dates: start: 20240408, end: 20240408
  26. PEPCID [Concomitant]
     Active Substance: FAMOTIDINE
     Indication: Prophylaxis
     Dosage: 20 MG, AS NECESSARY
     Route: 065
     Dates: start: 20240408
  27. NEULASTA [Concomitant]
     Active Substance: PEGFILGRASTIM
     Indication: Prophylaxis
     Dosage: 6 MG, AS NECESSARY
     Route: 065
     Dates: start: 20240408
  28. SODIUM CHLORIDE [Concomitant]
     Active Substance: SODIUM CHLORIDE
     Indication: Supplementation therapy
     Dosage: 500 ML, AS NECESSARY
     Route: 065
     Dates: start: 20240408
  29. SODIUM CHLORIDE [Concomitant]
     Active Substance: SODIUM CHLORIDE
     Indication: Infusion related reaction
     Dosage: 999 ML, AS NECESSARY
     Route: 065
     Dates: start: 20240408, end: 20240408
  30. SODIUM CHLORIDE [Concomitant]
     Active Substance: SODIUM CHLORIDE
     Indication: Atrial fibrillation
     Dosage: 2 L, TOTAL
     Route: 065
     Dates: start: 20240412, end: 20240412
  31. METOPROLOL [Concomitant]
     Active Substance: METOPROLOL
     Indication: Atrial fibrillation
     Dosage: 50 MG, 2/DAYS
     Route: 065
     Dates: start: 20240413
  32. DUPIXENT [Concomitant]
     Active Substance: DUPILUMAB
     Indication: Neurodermatitis
     Dosage: 600 MG, EVERY 2 WEEKS
     Route: 065
     Dates: start: 20240414
  33. DIPHENHYDRAMINE;LIDOCAINE [Concomitant]
     Indication: Stomatitis
     Dosage: 5 ML, AS NECESSARY
     Route: 065
     Dates: start: 20240423
  34. ATORVASTATIN [Concomitant]
     Active Substance: ATORVASTATIN
     Indication: Hyperlipidaemia
     Dosage: 20 MG, EVERY 1 DAY (START DATE:2011)
     Route: 065
  35. ATOVAQUONE [Concomitant]
     Active Substance: ATOVAQUONE
     Indication: Pneumocystis jirovecii pneumonia
     Dosage: 10 ML, AS NECESSARY
     Route: 065
     Dates: start: 20240423
  36. PROZAC [Concomitant]
     Active Substance: FLUOXETINE HYDROCHLORIDE
     Indication: Depression
     Dosage: 40 MG, EVERY 1 DAYS
     Route: 065
     Dates: start: 20240425
  37. HYDROCHLOROTHIAZIDE [Concomitant]
     Active Substance: HYDROCHLOROTHIAZIDE
     Indication: Hypertension
     Dosage: 12.5 MG, EVERY 1 DAYS, START DATE: 2009
     Route: 065
     Dates: end: 20240422
  38. COMPAZINE [Concomitant]
     Active Substance: PROCHLORPERAZINE MALEATE
     Indication: Prophylaxis of nausea and vomiting
     Dosage: 10 MG, AS NECESSARY
     Route: 065
     Dates: start: 20240508
  39. COMPAZINE [Concomitant]
     Active Substance: PROCHLORPERAZINE MALEATE
     Indication: Gastritis

REACTIONS (5)
  - Hypertransaminasaemia [Recovered/Resolved]
  - Cholestasis [Recovered/Resolved]
  - Escherichia test positive [Recovered/Resolved]
  - Gastroenteritis norovirus [Recovered/Resolved]
  - Sepsis [Recovered/Resolved]

NARRATIVE: CASE EVENT DATE: 20240508
